FAERS Safety Report 21680891 (Version 1)
Quarter: 2022Q4

REPORT INFORMATION
  Report Type: Spontaneous
  Country: US (occurrence: None)
  Receive Date: 20221202
  Receipt Date: 20221202
  Transmission Date: 20230112
  Serious: Yes (Hospitalization)
  Sender: FDA-Public Use
  Company Number: None

PATIENT
  Age: 70 Year
  Sex: Male

DRUGS (2)
  1. XELODA [Suspect]
     Active Substance: CAPECITABINE
     Dates: end: 20221023
  2. ELOXATIN [Suspect]
     Active Substance: OXALIPLATIN
     Dates: end: 20221010

REACTIONS (16)
  - Abdominal discomfort [None]
  - Abdominal pain lower [None]
  - Abdominal distension [None]
  - Diarrhoea [None]
  - Hiccups [None]
  - Eructation [None]
  - Hypophagia [None]
  - Food intolerance [None]
  - Nausea [None]
  - Ileus [None]
  - Intestinal obstruction [None]
  - Pyrexia [None]
  - Tachycardia [None]
  - Pallor [None]
  - Pneumonia [None]
  - Bacterial infection [None]

NARRATIVE: CASE EVENT DATE: 20221027
